FAERS Safety Report 24226045 (Version 3)
Quarter: 2025Q3

REPORT INFORMATION
  Report Type: Report from Study
  Country: CA (occurrence: CA)
  Receive Date: 20240820
  Receipt Date: 20250902
  Transmission Date: 20251021
  Serious: Yes (Hospitalization, Other)
  Sender: ABBVIE
  Company Number: CA-ABBVIE-5883931

PATIENT
  Age: 63 Year
  Sex: Male

DRUGS (2)
  1. VENETOCLAX [Suspect]
     Active Substance: VENETOCLAX
     Indication: Chronic lymphocytic leukaemia
     Dosage: FORM STRENGTH: 100 MG
     Route: 048
     Dates: start: 20240628
  2. RITUXIMAB [Concomitant]
     Active Substance: RITUXIMAB
     Indication: Product used for unknown indication

REACTIONS (5)
  - Inguinal hernia [Unknown]
  - Coronary arterial stent insertion [Recovering/Resolving]
  - Dizziness [Recovering/Resolving]
  - Chemotherapy [Unknown]
  - Nausea [Unknown]

NARRATIVE: CASE EVENT DATE: 20240712
